FAERS Safety Report 16478665 (Version 4)
Quarter: 2019Q3

REPORT INFORMATION
  Report Type: Spontaneous
  Country: US (occurrence: US)
  Receive Date: 20190626
  Receipt Date: 20190709
  Transmission Date: 20191004
  Serious: No
  Sender: FDA-Public Use
  Company Number: US-PFIZER INC-2019271704

PATIENT
  Age: 57 Year
  Sex: Female

DRUGS (1)
  1. XELJANZ XR [Suspect]
     Active Substance: TOFACITINIB CITRATE
     Indication: RHEUMATOID ARTHRITIS
     Dosage: 11 MG, 1X/DAY
     Route: 048
     Dates: start: 20190616

REACTIONS (7)
  - Agitation [Unknown]
  - Sinus disorder [Unknown]
  - Pain in extremity [Unknown]
  - Anger [Unknown]
  - Decreased immune responsiveness [Unknown]
  - Cough [Unknown]
  - Irritability [Unknown]
